FAERS Safety Report 10395651 (Version 4)
Quarter: 2015Q1

REPORT INFORMATION
  Report Type: Report from Study
  Country: CA (occurrence: CA)
  Receive Date: 20140820
  Receipt Date: 20150227
  Transmission Date: 20150720
  Serious: Yes (Other)
  Sender: FDA-Public Use
  Company Number: CA-ROCHE-1191893

PATIENT
  Age: 51 Year
  Sex: Male
  Weight: 63.5 kg

DRUGS (9)
  1. ACETAMINOPHEN. [Concomitant]
     Active Substance: ACETAMINOPHEN
     Indication: PREMEDICATION
     Route: 048
     Dates: start: 20130205
  2. PLAQUENIL [Concomitant]
     Active Substance: HYDROXYCHLOROQUINE SULFATE
  3. DIPHENHYDRAMINE HCL [Concomitant]
     Active Substance: DIPHENHYDRAMINE HYDROCHLORIDE
     Indication: PREMEDICATION
     Route: 048
     Dates: start: 20130205
  4. COUMADIN (CANADA) [Concomitant]
  5. RITUXIMAB [Suspect]
     Active Substance: RITUXIMAB
     Route: 042
     Dates: start: 20130219
  6. RITUXIMAB [Suspect]
     Active Substance: RITUXIMAB
     Indication: RHEUMATOID ARTHRITIS
     Dosage: DATE OF THE LAST DOSE RECIEVED PRIOR TO THE ADVERSE EVENT: 19/FEB/2013
     Route: 042
     Dates: start: 20130205
  7. VITAMIN A [Concomitant]
     Active Substance: VITAMIN A
  8. METHYLPREDNISOLONE. [Concomitant]
     Active Substance: METHYLPREDNISOLONE
     Indication: PREMEDICATION
     Route: 042
     Dates: start: 20130205
  9. ARAVA [Concomitant]
     Active Substance: LEFLUNOMIDE

REACTIONS (7)
  - Arthralgia [Recovering/Resolving]
  - Laceration [Recovered/Resolved]
  - Cough [Unknown]
  - Osteopenia [Not Recovered/Not Resolved]
  - Rheumatoid arthritis [Unknown]
  - Thrombosis [Unknown]
  - Skin abrasion [Recovered/Resolved]

NARRATIVE: CASE EVENT DATE: 20130809
